FAERS Safety Report 8910528 (Version 3)
Quarter: 2013Q3

REPORT INFORMATION
  Report Type: Spontaneous
  Country: US (occurrence: US)
  Receive Date: 20121114
  Receipt Date: 20130702
  Transmission Date: 20140515
  Serious: Yes (Hospitalization, Disabling, Other)
  Sender: FDA-Public Use
  Company Number: US-009507513-1211USA005787

PATIENT
  Sex: Female
  Weight: 57.14 kg

DRUGS (2)
  1. FOSAMAX [Suspect]
     Indication: BONE DENSITY DECREASED
     Dosage: 70 MG, UNK
     Route: 048
     Dates: start: 2002, end: 201006
  2. ALENDRONATE SODIUM [Suspect]
     Dosage: 70 MG, UNK

REACTIONS (37)
  - Femur fracture [Not Recovered/Not Resolved]
  - Chest pain [Unknown]
  - Troponin increased [Recovered/Resolved]
  - Open reduction of fracture [Not Recovered/Not Resolved]
  - Open reduction of fracture [Unknown]
  - Femur fracture [Unknown]
  - Hip arthroplasty [Unknown]
  - Bone graft [Unknown]
  - Internal fixation of fracture [Unknown]
  - Femur fracture [Unknown]
  - Removal of internal fixation [Unknown]
  - Fibula fracture [Unknown]
  - Osteoarthritis [Unknown]
  - Rheumatoid arthritis [Unknown]
  - Tachycardia [Unknown]
  - Brain natriuretic peptide increased [Unknown]
  - Left ventricular dysfunction [Unknown]
  - Ventricular hypokinesia [Unknown]
  - Mitral valve incompetence [Unknown]
  - Tricuspid valve incompetence [Unknown]
  - Pulmonary hypertension [Unknown]
  - Bursitis [Unknown]
  - Osteopenia [Unknown]
  - Urinary incontinence [Unknown]
  - Depression [Unknown]
  - Anaemia [Unknown]
  - Foot operation [Unknown]
  - Device failure [Unknown]
  - Fracture nonunion [Unknown]
  - Urinary tract infection [Unknown]
  - Device failure [Unknown]
  - Osteoporosis [Unknown]
  - Liver function test abnormal [Unknown]
  - Hand deformity [Unknown]
  - Joint dislocation [Unknown]
  - Blood calcium increased [Unknown]
  - Staphylococcal infection [Unknown]
